FAERS Safety Report 19496742 (Version 1)
Quarter: 2021Q3

REPORT INFORMATION
  Report Type: Spontaneous
  Country: US (occurrence: US)
  Receive Date: 20210704
  Receipt Date: 20210704
  Transmission Date: 20211014
  Serious: Yes (Hospitalization, Disabling)
  Sender: FDA-Public Use
  Company Number: None

PATIENT
  Age: 87 Year
  Weight: 74.25 kg

DRUGS (2)
  1. IPILIMUMAB [Suspect]
     Active Substance: IPILIMUMAB
  2. NIVOLUMAB [Suspect]
     Active Substance: NIVOLUMAB
     Indication: METASTATIC MALIGNANT MELANOMA
     Dates: start: 20210603, end: 20210603

REACTIONS (4)
  - Blindness cortical [None]
  - Fall [None]
  - Cerebrovascular accident [None]
  - Asthenia [None]

NARRATIVE: CASE EVENT DATE: 20210619
